FAERS Safety Report 6109702-2 (Version None)
Quarter: 2009Q1

REPORT INFORMATION
  Report Type: 
  Country: None (occurrence: None)
  Receive Date: 20090306
  Receipt Date: 20090226
  Transmission Date: 20090719
  Serious: Yes (Other)
  Sender: FDA-Public Use
  Company Number: CHPA2009US05609

PATIENT
  Age: 11 Year
  Sex: Male

DRUGS (2)
  1. TRIAMINIC COLD AND ALLERGY (NCH) (CHLORPHENAMINE MALEATE, PHENYLEPHRIN [Suspect]
     Indication: NASAL CONGESTION
     Dosage: ORAL
     Route: 048
     Dates: start: 20080901, end: 20080901
  2. TRIAMINIC SRT [Suspect]
     Dosage: ORAL
     Route: 048

REACTIONS (2)
  - CONVULSION [None]
  - HEADACHE [None]
